FAERS Safety Report 13064898 (Version 2)
Quarter: 2017Q1

REPORT INFORMATION
  Report Type: Spontaneous
  Country: NL (occurrence: NL)
  Receive Date: 20161227
  Receipt Date: 20170209
  Transmission Date: 20170428
  Serious: Yes (Hospitalization)
  Sender: FDA-Public Use
  Company Number: NL-PFIZER INC-2016597075

PATIENT
  Age: 84 Year
  Sex: Female

DRUGS (15)
  1. FENTANYL. [Concomitant]
     Active Substance: FENTANYL
     Dosage: UNK
     Route: 062
  2. METOPROLOL. [Concomitant]
     Active Substance: METOPROLOL
     Dosage: 100 MG, QD
     Route: 048
  3. METHOTREXAAT /00113801/ [Concomitant]
     Active Substance: METHOTREXATE SODIUM
     Dosage: 20 MG/ML,
     Route: 051
  4. ENALAPRIL [Concomitant]
     Active Substance: ENALAPRIL
     Dosage: 10 MG, QD
     Route: 048
  5. PANTOPRAZOLE [Suspect]
     Active Substance: PANTOPRAZOLE SODIUM
     Dosage: 40 MG, QD
     Route: 048
     Dates: start: 20160319, end: 20160419
  6. ALENDRONINEZUUR [Concomitant]
     Dosage: 70 MG, UNK
     Route: 048
  7. SIMVASTATINE [Concomitant]
     Active Substance: SIMVASTATIN
     Dosage: 40 MG, QD
     Route: 048
  8. RANITIDINE /00550802/ [Concomitant]
     Dosage: 150 MG, BID
     Route: 048
  9. CLOPIDOGREL [Concomitant]
     Active Substance: CLOPIDOGREL BISULFATE
     Dosage: 75 MG, QD
     Route: 048
  10. KALIUMCHLORIDE [Concomitant]
     Dosage: 600 MG, TID
     Route: 048
  11. CALCIUMCARBONAAT [Concomitant]
     Dosage: 500 MG, BID
     Route: 048
  12. PARACETAMOL [Concomitant]
     Active Substance: ACETAMINOPHEN
     Dosage: 500 MG, UNK
     Route: 048
  13. CALCIUM CARBONATE W/COLECALCIFEROL [Concomitant]
     Active Substance: CALCIUM CARBONATE\CHOLECALCIFEROL
     Dosage: 1.25 G/ 800 IE, QD
     Route: 048
  14. ACETYLSALICYLZUUR [Concomitant]
     Active Substance: ASPIRIN
     Dosage: 80 MG, QD
     Route: 048
  15. FOLIUMZUUR [Concomitant]
     Active Substance: FOLIC ACID
     Dosage: 5 MG, UNK
     Route: 048

REACTIONS (6)
  - Vomiting [Recovered/Resolved]
  - Hypokalaemia [Recovered/Resolved]
  - Diarrhoea [Recovered/Resolved]
  - Tremor [Recovered/Resolved]
  - Hypocalcaemia [Recovered/Resolved]
  - Hypomagnesaemia [Recovered/Resolved]

NARRATIVE: CASE EVENT DATE: 20160419
